FAERS Safety Report 8356219-0 (Version None)
Quarter: 2012Q2

REPORT INFORMATION
  Report Type: 
  Country: None (occurrence: None)
  Receive Date: 20120514
  Receipt Date: 20120502
  Transmission Date: 20120825
  Serious: Yes (Death, Other)
  Sender: FDA-Public Use
  Company Number: US-SANOFI-AVENTIS-2012SA031604

PATIENT
  Age: 55 Year
  Sex: Male

DRUGS (3)
  1. PLAVIX [Suspect]
     Indication: STENT PLACEMENT
     Route: 048
     Dates: start: 20110515
  2. PLAVIX [Suspect]
     Route: 048
     Dates: start: 20110515
  3. INSULIN [Concomitant]

REACTIONS (6)
  - HAEMORRHAGE [None]
  - WOUND COMPLICATION [None]
  - RED BLOOD CELL COUNT DECREASED [None]
  - ASTHENIA [None]
  - MASS [None]
  - THERAPEUTIC RESPONSE INCREASED [None]
